FAERS Safety Report 14339337 (Version 1)
Quarter: 2017Q4

REPORT INFORMATION
  Report Type: Other
  Country: PL (occurrence: PL)
  Receive Date: 20171230
  Receipt Date: 20171230
  Transmission Date: 20180321
  Serious: Yes (Hospitalization, Other)
  Sender: FDA-Public Use
  Company Number: PL-GLENMARK PHARMACEUTICALS-2017GMK030306

PATIENT

DRUGS (9)
  1. ATORVASTATIN [Concomitant]
     Active Substance: ATORVASTATIN
     Dosage: ()
     Route: 065
  2. FUROSEMIDE. [Concomitant]
     Active Substance: FUROSEMIDE
     Indication: PRODUCT USED FOR UNKNOWN INDICATION
     Dosage: UNK
     Route: 065
  3. ACETYLSALICYLIC ACID [Concomitant]
     Active Substance: ASPIRIN
     Indication: PRODUCT USED FOR UNKNOWN INDICATION
     Dosage: UNK
     Route: 065
  4. ALLOPURINOL. [Suspect]
     Active Substance: ALLOPURINOL
     Indication: TACHYCARDIA PAROXYSMAL
     Dosage: UNK
     Route: 065
  5. CARVEDILOL. [Suspect]
     Active Substance: CARVEDILOL
     Indication: PRODUCT USED FOR UNKNOWN INDICATION
     Dosage: UNK
     Route: 065
  6. OPACORDEN [Interacting]
     Active Substance: AMIODARONE HYDROCHLORIDE
     Indication: TACHYCARDIA PAROXYSMAL
     Dosage: UNK
     Route: 065
  7. AMLODIPINE [Suspect]
     Active Substance: AMLODIPINE BESYLATE
     Indication: TACHYCARDIA PAROXYSMAL
     Dosage: UNK
     Route: 065
  8. CILAZAPRIL [Suspect]
     Active Substance: CILAZAPRIL ANHYDROUS
     Indication: TACHYCARDIA PAROXYSMAL
     Dosage: UNK
     Route: 065
  9. NEORECORMON [Concomitant]
     Active Substance: ERYTHROPOIETIN
     Indication: PRODUCT USED FOR UNKNOWN INDICATION
     Dosage: 1000 UNITS PER WEEK ()
     Route: 065

REACTIONS (4)
  - Drug interaction [Unknown]
  - Bradycardia [Recovered/Resolved]
  - Rebound tachycardia [Recovered/Resolved]
  - Chronic kidney disease [Unknown]
